FAERS Safety Report 7646439-2 (Version None)
Quarter: 2011Q3

REPORT INFORMATION
  Report Type: 
  Country: None (occurrence: None)
  Receive Date: 20110801
  Receipt Date: 20110721
  Transmission Date: 20111222
  Serious: Yes (Hospitalization)
  Sender: FDA-Public Use
  Company Number: FR-JNJFOC-20110708906

PATIENT
  Age: 81 Year
  Sex: Female

DRUGS (12)
  1. ROVAMYCIN [Suspect]
     Indication: PNEUMONIA LEGIONELLA
     Route: 065
     Dates: start: 20110616, end: 20110623
  2. AMIKACIN [Concomitant]
     Route: 065
     Dates: start: 20110617, end: 20110618
  3. PREVISCAN (FLUINDIONE) [Concomitant]
     Route: 065
  4. LEVOFLOXACIN [Suspect]
     Indication: PNEUMONIA LEGIONELLA
     Route: 042
     Dates: start: 20110616, end: 20110623
  5. MICARDIS [Concomitant]
     Route: 065
  6. CHLORAMINOPHENE [Concomitant]
     Route: 065
  7. AMIODARONE HCL [Concomitant]
     Route: 065
  8. DOTHIEPIN HYDROCHLORIDE [Concomitant]
     Route: 065
  9. TARGOCID [Suspect]
     Indication: PNEUMONIA LEGIONELLA
     Route: 042
     Dates: start: 20110620, end: 20110621
  10. BISOPROLOL FUMARATE [Concomitant]
     Route: 065
  11. POTASSIUM CHLORIDE [Concomitant]
     Route: 065
  12. ALLOPURINOL [Concomitant]
     Route: 065
     Dates: end: 20110616

REACTIONS (3)
  - BLISTER [None]
  - ERYTHEMA [None]
  - ECZEMA [None]
